FAERS Safety Report 25303710 (Version 2)
Quarter: 2025Q2

REPORT INFORMATION
  Report Type: Report from Study
  Country: US (occurrence: US)
  Receive Date: 20250513
  Receipt Date: 20250531
  Transmission Date: 20250716
  Serious: Yes (Other)
  Sender: AMGEN
  Company Number: US-AMGEN-USASP2025091709

PATIENT
  Age: 77 Year
  Sex: Female
  Weight: 94.34 kg

DRUGS (34)
  1. OTEZLA [Suspect]
     Active Substance: APREMILAST
     Indication: Product used for unknown indication
     Route: 065
     Dates: end: 202411
  2. ENBREL [Suspect]
     Active Substance: ETANERCEPT
     Indication: Gout
     Dosage: 50 MILLIGRAM, QWK
     Route: 058
     Dates: start: 20250205, end: 20250508
  3. ENBREL [Suspect]
     Active Substance: ETANERCEPT
     Indication: Psoriatic arthropathy
     Dosage: 50 MILLIGRAM, QWK
     Route: 058
     Dates: start: 202505
  4. ENBREL [Suspect]
     Active Substance: ETANERCEPT
     Indication: Intervertebral disc disorder
  5. ENBREL [Suspect]
     Active Substance: ETANERCEPT
     Indication: Thromboangiitis obliterans
  6. ENBREL [Suspect]
     Active Substance: ETANERCEPT
     Indication: Iron deficiency
  7. PREDNISONE [Suspect]
     Active Substance: PREDNISONE
     Indication: Product used for unknown indication
     Dosage: 10 MILLIGRAM, QD
     Route: 048
     Dates: start: 20250212, end: 20250508
  8. NIFEDIPINE [Concomitant]
     Active Substance: NIFEDIPINE
  9. WARFARIN [Concomitant]
     Active Substance: WARFARIN
     Indication: Thromboangiitis obliterans
     Dosage: 5 MILLIGRAM, QD
  10. STOOL SOFTENER (DOCUSATE) [Concomitant]
     Active Substance: DOCUSATE
  11. CARBINOXAMINE [Concomitant]
     Active Substance: CARBINOXAMINE
  12. LEVOTHYROXINE [Concomitant]
     Active Substance: LEVOTHYROXINE
  13. CALCIUM CHLORIDE\MAGNESIUM CHLORIDE [Concomitant]
     Active Substance: CALCIUM CHLORIDE\MAGNESIUM CHLORIDE
  14. FAMOTIDINE [Concomitant]
     Active Substance: FAMOTIDINE
     Dosage: 20 MILLIGRAM, QD
     Route: 048
  15. ATORVASTATIN [Concomitant]
     Active Substance: ATORVASTATIN
     Dosage: 40 MILLIGRAM, QD
     Route: 048
  16. IPRATROPIUM [Concomitant]
     Active Substance: IPRATROPIUM
  17. ALBUTEROL [Concomitant]
     Active Substance: ALBUTEROL
  18. SERTRALINE [Concomitant]
     Active Substance: SERTRALINE HYDROCHLORIDE
     Dosage: 50 MILLIGRAM, QD
     Route: 048
  19. TRAZODONE [Concomitant]
     Active Substance: TRAZODONE HYDROCHLORIDE
     Dosage: 50 MILLIGRAM, QD
     Route: 048
  20. LINZESS [Concomitant]
     Active Substance: LINACLOTIDE
     Dosage: 145 MICROGRAM, QD
     Route: 048
  21. CALCIUM [Concomitant]
     Active Substance: CALCIUM
     Dosage: UNK (600+ D(3) 600 MG-5 MCG (200 UNIT) ), QD
     Route: 048
  22. BREZTRI [Concomitant]
     Active Substance: BUDESONIDE\FORMOTEROL\GLYCOPYRROLATE
     Dosage: UNK UNK, BID
  23. DICLOFENAC [Concomitant]
     Active Substance: DICLOFENAC
     Dosage: 40 DROP, QID
     Route: 061
     Dates: start: 20241105
  24. COLCHICINE [Concomitant]
     Active Substance: COLCHICINE
     Indication: Gout
     Route: 048
     Dates: start: 20250115
  25. GUAIFENESIN AC [Concomitant]
     Active Substance: CODEINE PHOSPHATE\GUAIFENESIN
     Route: 048
  26. LIDOCAINE [Concomitant]
     Active Substance: LIDOCAINE
     Route: 061
     Dates: start: 20250205, end: 20250508
  27. PRAMIPEXOLE [Concomitant]
     Active Substance: PRAMIPEXOLE
     Dates: start: 20250205, end: 20250508
  28. CYCLOBENZAPRINE [Concomitant]
     Active Substance: CYCLOBENZAPRINE
     Dates: start: 20250205, end: 20250508
  29. CYANOCOBALAMIN [Concomitant]
     Active Substance: CYANOCOBALAMIN
     Indication: Gout
     Dosage: 1 MILLILITER, QMO
     Route: 058
     Dates: start: 20250205, end: 20250508
  30. HYDROCODONE [Concomitant]
     Active Substance: HYDROCODONE
     Indication: Pain
     Route: 048
     Dates: start: 20250331
  31. ACETAMINOPHEN [Concomitant]
     Active Substance: ACETAMINOPHEN
     Indication: Pain
     Route: 048
  32. TRIAMTERENE [Concomitant]
     Active Substance: TRIAMTERENE
     Indication: Swelling
     Dosage: 37.5 MILLIGRAM, QD
     Route: 048
     Dates: start: 20250331, end: 20250508
  33. HYDROCHLOROTHIAZIDE [Concomitant]
     Active Substance: HYDROCHLOROTHIAZIDE
     Indication: Swelling
     Dosage: 25 MILLIGRAM, QD
     Route: 048
     Dates: start: 20250331, end: 20250508
  34. CALCITONIN [Concomitant]
     Active Substance: CALCITONIN
     Dosage: UNK UNK, QD
     Route: 045
     Dates: start: 20250531, end: 20250508

REACTIONS (18)
  - Psoriatic arthropathy [Unknown]
  - Knee arthroplasty [Unknown]
  - Finger amputation [Unknown]
  - Therapy cessation [Unknown]
  - Essential hypertension [Unknown]
  - Fibromyalgia [Unknown]
  - Herpes zoster [Unknown]
  - Neck pain [Unknown]
  - Restless legs syndrome [Unknown]
  - Coccydynia [Unknown]
  - Spinal pain [Unknown]
  - Cough [Unknown]
  - Anaemia [Unknown]
  - Carpal tunnel syndrome [Unknown]
  - Synovial cyst [Unknown]
  - Rash [Unknown]
  - Fall [Unknown]
  - Illness [Unknown]

NARRATIVE: CASE EVENT DATE: 20210928
